FAERS Safety Report 19360872 (Version 1)
Quarter: 2021Q2

REPORT INFORMATION
  Report Type: Report from Study
  Country: None (occurrence: US)
  Receive Date: 20210602
  Receipt Date: 20210602
  Transmission Date: 20210717
  Serious: No
  Sender: FDA-Public Use
  Company Number: US-MDD US OPERATIONS-MDD202011-002319

PATIENT
  Age: 60 Year
  Sex: Male

DRUGS (8)
  1. APOKYN [Suspect]
     Active Substance: APOMORPHINE HYDROCHLORIDE
     Route: 058
  2. METHYLPHENIDATE. [Concomitant]
     Active Substance: METHYLPHENIDATE
     Dosage: NOT PROVIDED
  3. PRAVASTATIN/VALSARTAN [Concomitant]
     Dosage: NOT PROVIDED
  4. QUETIAPINE. [Concomitant]
     Active Substance: QUETIAPINE
     Dosage: NOT PROVIDED
  5. SINEMET [Concomitant]
     Active Substance: CARBIDOPA\LEVODOPA
     Dosage: NOT PROVIDED
  6. APOKYN [Suspect]
     Active Substance: APOMORPHINE HYDROCHLORIDE
     Indication: PARKINSON^S DISEASE
     Route: 058
     Dates: start: 20201118
  7. TIGAN [Concomitant]
     Active Substance: TRIMETHOBENZAMIDE HYDROCHLORIDE
     Dosage: NOT PROVIDED
     Dates: start: 20201115
  8. MELOXICAM/FLUOXETINE [Concomitant]
     Dosage: NOT PROVIDED

REACTIONS (2)
  - Blood pressure decreased [Unknown]
  - Somnolence [Unknown]

NARRATIVE: CASE EVENT DATE: 20201118
